FAERS Safety Report 18040922 (Version 4)
Quarter: 2020Q3

REPORT INFORMATION
  Report Type: Report from Study
  Country: FR (occurrence: FR)
  Receive Date: 20200717
  Receipt Date: 20200929
  Transmission Date: 20201103
  Serious: Yes (Hospitalization)
  Sender: FDA-Public Use
  Company Number: FR-BAXTER-2020BAX014545

PATIENT
  Age: 12 Year
  Sex: Male
  Weight: 48.6 kg

DRUGS (27)
  1. LENOGRASTIM [Concomitant]
     Active Substance: LENOGRASTIM
     Indication: PROPHYLAXIS
     Route: 042
     Dates: start: 20200319
  2. TOPOTECAN HYDROCHLORIDE. [Suspect]
     Active Substance: TOPOTECAN HYDROCHLORIDE
     Dosage: DAYS 1?4 OF 21?DAY CYCLE
     Route: 042
     Dates: start: 20200622, end: 20200625
  3. METHYLPREDNISOLONE. [Concomitant]
     Active Substance: METHYLPREDNISOLONE
     Indication: PROPHYLAXIS OF NAUSEA AND VOMITING
     Route: 042
     Dates: start: 20200314
  4. DEXTROSE IN WATER [Concomitant]
     Active Substance: DEXTROSE\WATER
     Indication: PROPHYLAXIS
     Route: 042
     Dates: start: 20200312, end: 20200318
  5. ENDOXAN 1000 MG, POUDRE POUR SOLUTIONINJECTABLE [Suspect]
     Active Substance: CYCLOPHOSPHAMIDE
     Indication: RECURRENT CANCER
     Route: 065
     Dates: start: 20150604, end: 20160526
  6. ENDOXAN 1000 MG, POUDRE POUR SOLUTIONINJECTABLE [Suspect]
     Active Substance: CYCLOPHOSPHAMIDE
     Dosage: DAYS 1?5 OF EACH 21?DAY CYCLE
     Route: 042
     Dates: start: 20200314, end: 20200531
  7. TOPOTECAN HYDROCHLORIDE. [Suspect]
     Active Substance: TOPOTECAN HYDROCHLORIDE
     Indication: REFRACTORY CANCER
     Dosage: DAYS 1?5 OF EACH 21?DAY CYCLE
     Route: 042
     Dates: start: 20200314, end: 20200531
  8. BACTRIM [Concomitant]
     Active Substance: SULFAMETHOXAZOLE\TRIMETHOPRIM
     Indication: INFECTION PROPHYLAXIS
     Route: 048
     Dates: start: 20200309
  9. RED BLOOD CELLS [Concomitant]
     Active Substance: HUMAN RED BLOOD CELL
     Indication: PRODUCT USED FOR UNKNOWN INDICATION
     Dosage: TRANSFUSIONS
     Route: 065
     Dates: start: 20200420
  10. VENETOCLAX. [Suspect]
     Active Substance: VENETOCLAX
     Indication: RECURRENT CANCER
     Dosage: TABLET
     Route: 048
     Dates: start: 20200312, end: 20200312
  11. TOPOTECAN HYDROCHLORIDE. [Suspect]
     Active Substance: TOPOTECAN HYDROCHLORIDE
     Indication: RECURRENT CANCER
     Route: 065
     Dates: start: 20191202, end: 20200215
  12. ALLOPURINOL. [Concomitant]
     Active Substance: ALLOPURINOL
     Indication: PROPHYLAXIS
     Route: 065
     Dates: start: 20200312, end: 20200315
  13. ENDOXAN 1000 MG, POUDRE POUR SOLUTIONINJECTABLE [Suspect]
     Active Substance: CYCLOPHOSPHAMIDE
     Indication: REFRACTORY CANCER
     Route: 065
     Dates: start: 20191202, end: 20200215
  14. ENDOXAN 1000 MG, POUDRE POUR SOLUTIONINJECTABLE [Suspect]
     Active Substance: CYCLOPHOSPHAMIDE
     Dosage: DAYS 1?4 OF 21?DAY CYCLE
     Route: 042
     Dates: start: 20200622, end: 20200625
  15. HOLOXAN 2000 MG, POUDRE POUR USAGE PARENTERAL [Suspect]
     Active Substance: IFOSFAMIDE
     Indication: EWING^S SARCOMA
     Route: 065
     Dates: start: 20130313, end: 20140125
  16. VENETOCLAX. [Suspect]
     Active Substance: VENETOCLAX
     Dosage: TABLET
     Route: 048
     Dates: start: 20200626
  17. ESOMEPRAZOLE. [Concomitant]
     Active Substance: ESOMEPRAZOLE MAGNESIUM
     Indication: PROPHYLAXIS
     Route: 048
     Dates: start: 20200309
  18. CEFIXIME. [Concomitant]
     Active Substance: CEFIXIME
     Indication: INFECTION PROPHYLAXIS
     Dosage: 1 TABLET MORNING AND EVENING, STARTING 2 DAYS BEFORE THE TOPECAN AND STOPPING 2 DAYS AFTER
     Route: 048
     Dates: start: 20200312
  19. PLATELETS [Concomitant]
     Active Substance: HUMAN PLATELET, ALLOGENIC
     Indication: PRODUCT USED FOR UNKNOWN INDICATION
     Dosage: TRANSFUSIONS
     Route: 065
     Dates: start: 20200422
  20. VANCOMYCINE [Concomitant]
     Active Substance: VANCOMYCIN
     Indication: FEBRILE NEUTROPENIA
     Route: 042
     Dates: start: 20200602
  21. CELLTOP 100 MG/5 ML, SOLUTION INJECTABLE POUR PERFUSION [Suspect]
     Active Substance: ETOPOSIDE
     Indication: EWING^S SARCOMA
     Route: 065
     Dates: start: 20130312, end: 20140125
  22. VENETOCLAX. [Suspect]
     Active Substance: VENETOCLAX
     Indication: REFRACTORY CANCER
     Dosage: TABLET
     Route: 048
     Dates: start: 20200313, end: 20200624
  23. PHOCYTAN [Concomitant]
     Active Substance: .ALPHA.-GLUCOSE-1-PHOSPHATE
     Indication: RENAL TUBULAR DISORDER
     Route: 048
     Dates: start: 20200309
  24. SODIUM BICARBONATE. [Concomitant]
     Active Substance: SODIUM BICARBONATE
     Indication: PROPHYLAXIS
     Route: 048
     Dates: start: 20200402
  25. UROMITEXAN 1 G/10 ML, SOLUTION INJECTABLE POUR PERFUSION EN FLACON [Suspect]
     Active Substance: MESNA
     Indication: PROPHYLAXIS URINARY TRACT INFECTION
     Route: 042
     Dates: start: 20200314
  26. VENETOCLAX. [Suspect]
     Active Substance: VENETOCLAX
     Dosage: TABLET
     Route: 048
     Dates: start: 20200625, end: 20200625
  27. ONDANSETRON [Concomitant]
     Active Substance: ONDANSETRON
     Indication: PROPHYLAXIS OF NAUSEA AND VOMITING
     Route: 042
     Dates: start: 20200314

REACTIONS (1)
  - Febrile neutropenia [Recovered/Resolved]

NARRATIVE: CASE EVENT DATE: 20200701
